FAERS Safety Report 7412429-8 (Version None)
Quarter: 2011Q2

REPORT INFORMATION
  Report Type: 
  Country: None (occurrence: None)
  Receive Date: 20110413
  Receipt Date: 20110401
  Transmission Date: 20111010
  Serious: Yes (Hospitalization)
  Sender: FDA-Public Use
  Company Number: PHHY2011US07569

PATIENT
  Sex: Female
  Weight: 88.61 kg

DRUGS (20)
  1. QUINAPRIL [Concomitant]
  2. LASIX [Concomitant]
  3. LEVATOL [Concomitant]
  4. COREG [Concomitant]
  5. NEXIUM [Concomitant]
  6. VICOPROFEN [Concomitant]
  7. VITAMIN D [Concomitant]
  8. LEVEMIR [Concomitant]
  9. LIPOFLAVONOID [Concomitant]
  10. EXJADE [Suspect]
     Indication: MYELODYSPLASTIC SYNDROME
     Dosage: 2500 MG
     Route: 048
     Dates: start: 20090902
  11. ANTIBIOTICS [Concomitant]
     Dosage: UNK
  12. POTASSIUM [Concomitant]
  13. GABAPENTIN [Concomitant]
  14. CENTRUM SILVER [Concomitant]
  15. MECLIZINE [Concomitant]
  16. NITROGLYCERIN [Concomitant]
  17. AMBIEN [Concomitant]
  18. SPIRONOLACTONE [Concomitant]
  19. VICODIN [Concomitant]
  20. ASPIRIN [Concomitant]

REACTIONS (7)
  - ABDOMINAL DISCOMFORT [None]
  - KIDNEY INFECTION [None]
  - LIVER FUNCTION TEST ABNORMAL [None]
  - URINARY TRACT INFECTION [None]
  - PHARYNGITIS [None]
  - PELVIC FRACTURE [None]
  - FALL [None]
